FAERS Safety Report 5456430-2 (Version None)
Quarter: 2007Q3

REPORT INFORMATION
  Report Type: 
  Country: None (occurrence: None)
  Receive Date: 20070914
  Receipt Date: 20070914
  Transmission Date: 20080115
  Serious: Yes (Hospitalization, Other)
  Sender: FDA-Public Use
  Company Number: None

PATIENT
  Sex: Female

DRUGS (8)
  1. REVLIMID [Suspect]
     Indication: MULTIPLE MYELOMA
     Dosage: 25MG DAILY 21D/28D PO
     Route: 048
  2. DEXAMETHASONE 0.5MG TAB [Concomitant]
  3. LEVOTHROID [Concomitant]
  4. LOMOTIL [Concomitant]
  5. FLUOXETINE [Concomitant]
  6. ZYMAR OPTHALMIC SOLUTION [Concomitant]
  7. PREDNISOLONE OPTHALMIC SOLUTION [Concomitant]
  8. CYCLOPENTOLATE OPTHALMIC SOLUTION [Concomitant]

REACTIONS (7)
  - ANAEMIA [None]
  - DECREASED APPETITE [None]
  - DIARRHOEA [None]
  - DYSPNOEA [None]
  - LEUKOPENIA [None]
  - PANCYTOPENIA [None]
  - TREATMENT NONCOMPLIANCE [None]
